FAERS Safety Report 8950068 (Version 1)
Quarter: 2012Q4

REPORT INFORMATION
  Report Type: 
  Country: US (occurrence: US)
  Receive Date: 20121205
  Receipt Date: 20121205
  Transmission Date: 20130627
  Serious: Yes (Other)
  Sender: FDA-Public Use
  Company Number: US-ASTELLAS-2012US010038

PATIENT
  Age: 76 Year
  Sex: Female

DRUGS (7)
  1. TARCEVA [Suspect]
     Indication: NON-SMALL CELL LUNG CANCER
     Dosage: 150 mg, UID/QD
     Route: 048
     Dates: start: 20110527, end: 20120403
  2. TARCEVA [Suspect]
     Dosage: UNK mg, UID/QD
     Route: 048
     Dates: start: 20120920
  3. CARBOPLATIN [Suspect]
     Indication: MALIGNANT NEOPLASM PROGRESSION
     Dosage: Q3W, x8-9 cycles
     Route: 065
  4. ALIMTA [Suspect]
     Indication: MALIGNANT NEOPLASM PROGRESSION
     Dosage: Q3W, x8-9 cycles
     Route: 065
  5. EVISTA [Concomitant]
     Indication: PRODUCT USED FOR UNKNOWN INDICATION
     Dosage: UNK
     Route: 065
  6. MULTI-VIT [Concomitant]
     Indication: PRODUCT USED FOR UNKNOWN INDICATION
     Dosage: UNK
     Route: 065
  7. CALCIUM [Concomitant]
     Indication: PRODUCT USED FOR UNKNOWN INDICATION
     Dosage: UNK
     Route: 065

REACTIONS (1)
  - Malignant neoplasm progression [Recovered/Resolved]
